FAERS Safety Report 7398847-5 (Version None)
Quarter: 2011Q2

REPORT INFORMATION
  Report Type: 
  Country: None (occurrence: None)
  Receive Date: 20110407
  Receipt Date: 20110331
  Transmission Date: 20111010
  Serious: Yes (Hospitalization)
  Sender: FDA-Public Use
  Company Number: US-TEVA-274100USA

PATIENT
  Sex: Female

DRUGS (27)
  1. FLUOROURACIL [Suspect]
     Indication: NEOPLASM
     Route: 042
     Dates: start: 20110110
  2. FENTANYL [Concomitant]
     Indication: BACK PAIN
     Route: 062
     Dates: start: 20101228
  3. CALCIUM D3 [Concomitant]
     Indication: MEDICAL DIET
  4. COLECALCIFEROL [Concomitant]
     Indication: MEDICAL DIET
     Dosage: 1000 UNITS
  5. ALPHA-D-GALACTOSIDASE [Concomitant]
     Indication: FLATULENCE
     Dates: start: 20110110
  6. IRINOTECAN [Suspect]
     Route: 042
     Dates: start: 20110110
  7. INSULIN ASPART [Concomitant]
     Indication: DIABETES MELLITUS
     Dosage: 100 UNIT/ML
     Dates: start: 20090605
  8. MULTI-VITAMIN [Concomitant]
     Indication: MEDICAL DIET
  9. MILK THISTLE [Concomitant]
     Indication: MEDICAL DIET
     Dates: start: 20110205
  10. SILICON DIOXIDE W/SIMETICONE [Concomitant]
     Indication: FLATULENCE
     Dates: start: 20110110
  11. ACETYLSALICYLIC ACID SRT [Concomitant]
  12. PRASUGREL HYDROCHLORIDE [Concomitant]
     Indication: CORONARY ARTERY DISEASE
  13. GLYCERYL TRINITRATE [Concomitant]
     Indication: CORONARY ARTERY DISEASE
     Route: 060
  14. LOPERAMIDE HYDROCHLORIDE [Concomitant]
     Indication: DIARRHOEA
     Dosage: 1-2 TABLETS
     Dates: start: 20110221
  15. ROSUVASTATIN CALCIUM [Concomitant]
     Indication: HYPERCHOLESTEROLAEMIA
  16. OXYCODONE HCL AND ACETAMINOPHEN [Concomitant]
     Indication: BACK PAIN
     Dosage: 5/325MG
  17. PANCREATIN [Concomitant]
     Indication: MEDICAL DIET
  18. INVESTIGATIONAL DRUG [Suspect]
     Route: 048
     Dates: start: 20110124, end: 20110311
  19. ESOMEPRAZOLE MAGNESIUM [Concomitant]
     Indication: GASTROOESOPHAGEAL REFLUX DISEASE
  20. INSULIN DETEMIR [Concomitant]
     Indication: DIABETES MELLITUS
     Dosage: 30 UNIT
     Dates: start: 20081215
  21. LEVOTHYROXINE SODIUM [Concomitant]
     Indication: HYPOTHYROIDISM
  22. NOVOFINE [Concomitant]
     Indication: DIABETES MELLITUS
     Dosage: 32G X 6 MM
     Dates: start: 20081215
  23. FISH OIL [Concomitant]
     Indication: MEDICAL DIET
  24. L-GLUTATHIONE [Concomitant]
     Indication: MEDICAL DIET
     Dates: start: 20110205
  25. LEUCOVORIN CALCIUM TABLET 5MG [Suspect]
     Indication: NEOPLASM
     Route: 042
     Dates: start: 20110110
  26. ENOXAPARIN SODIUM [Concomitant]
     Indication: PULMONARY EMBOLISM
     Dates: start: 20090928
  27. DOCOSANOL [Concomitant]
     Indication: STOMATITIS
     Dates: start: 20110126

REACTIONS (1)
  - PYREXIA [None]
